FAERS Safety Report 21523397 (Version 3)
Quarter: 2022Q4

REPORT INFORMATION
  Report Type: Report from Study
  Country: US (occurrence: US)
  Receive Date: 20221029
  Receipt Date: 20221203
  Transmission Date: 20230113
  Serious: Yes (Hospitalization)
  Sender: FDA-Public Use
  Company Number: US-ABBVIE-22K-163-4421669-00

PATIENT
  Sex: Female

DRUGS (3)
  1. IMBRUVICA [Suspect]
     Active Substance: IBRUTINIB
     Indication: Chronic lymphocytic leukaemia
     Route: 048
     Dates: start: 20220107
  2. IMBRUVICA [Suspect]
     Active Substance: IBRUTINIB
     Indication: Chronic lymphocytic leukaemia
     Route: 048
  3. TOPIRAMATE [Concomitant]
     Active Substance: TOPIRAMATE
     Indication: Product used for unknown indication

REACTIONS (31)
  - Hospitalisation [Unknown]
  - Herpes zoster [Unknown]
  - Pelvic organ prolapse [Unknown]
  - Incontinence [Unknown]
  - Paraesthesia [Unknown]
  - Bladder disorder [Unknown]
  - Irritable bowel syndrome [Unknown]
  - Depression [Unknown]
  - Dizziness [Unknown]
  - Weight fluctuation [Unknown]
  - Lyme disease [Unknown]
  - Food craving [Unknown]
  - Weight increased [Unknown]
  - Chest pain [Unknown]
  - Cardiac flutter [Unknown]
  - Allergy to arthropod bite [Unknown]
  - Bronchitis [Unknown]
  - Rash [Unknown]
  - Vaccination site swelling [Unknown]
  - Memory impairment [Unknown]
  - Pain in extremity [Unknown]
  - Arthralgia [Unknown]
  - Cognitive disorder [Unknown]
  - Vaccination site cellulitis [Unknown]
  - Bradykinesia [Unknown]
  - Nausea [Unknown]
  - Dizziness [Unknown]
  - Haematoma [Unknown]
  - Antibody test negative [Unknown]
  - Arthropod bite [Unknown]
  - Stress [Unknown]
